FAERS Safety Report 8025544-5 (Version None)
Quarter: 2012Q1

REPORT INFORMATION
  Report Type: 
  Country: None (occurrence: None)
  Receive Date: 20120105
  Receipt Date: 20111229
  Transmission Date: 20120608
  Serious: Yes (Hospitalization)
  Sender: FDA-Public Use
  Company Number: US-PERRIGO-11US011396

PATIENT
  Sex: Male
  Weight: 90.703 kg

DRUGS (3)
  1. LOVASTATIN [Concomitant]
     Indication: BLOOD CHOLESTEROL INCREASED
     Dosage: 40 MG
     Route: 065
     Dates: start: 20061201
  2. TETRACYCLINE [Concomitant]
     Indication: ROSACEA
     Dosage: 250 MG
     Route: 065
     Dates: start: 20101201
  3. POLYETHYLENE GLYCOL [Suspect]
     Indication: CONSTIPATION
     Dosage: 8.5 G, QD
     Route: 048
     Dates: start: 20101228, end: 20111229

REACTIONS (4)
  - INCORRECT DRUG ADMINISTRATION DURATION [None]
  - UNDERDOSE [None]
  - DRUG INEFFECTIVE [None]
  - ABDOMINAL PAIN [None]
